FAERS Safety Report 20523178 (Version 18)
Quarter: 2023Q1

REPORT INFORMATION
  Report Type: Report from Study
  Country: BR (occurrence: BR)
  Receive Date: 20220227
  Receipt Date: 20230324
  Transmission Date: 20230417
  Serious: Yes (Hospitalization)
  Sender: FDA-Public Use
  Company Number: BR-AMGEN-BRACT2022030651

PATIENT
  Age: 17 Year
  Sex: Male

DRUGS (36)
  1. CARFILZOMIB [Suspect]
     Active Substance: CARFILZOMIB
     Indication: Acute lymphocytic leukaemia
     Dosage: 148.4 MILLIGRAM
     Route: 042
     Dates: start: 20220118
  2. DEXAMETHASONE [Suspect]
     Active Substance: DEXAMETHASONE
     Indication: Acute lymphocytic leukaemia
     Dosage: 6.3 MILLIGRAM
     Route: 065
     Dates: start: 20220118
  3. VINCRISTINE [Concomitant]
     Active Substance: VINCRISTINE
     Indication: Acute lymphocytic leukaemia
     Dosage: 2 MILLIGRAM
     Dates: start: 20220118
  4. PEG/L-ASPARAGINASE [Concomitant]
     Active Substance: PEGASPARGASE
     Indication: Acute lymphocytic leukaemia
     Dosage: 5300 UNK
     Dates: start: 20220122
  5. METHOTREXATE [Concomitant]
     Active Substance: METHOTREXATE
     Indication: Acute lymphocytic leukaemia
     Dosage: 15 MILLIGRAM
     Route: 037
     Dates: start: 20220125
  6. FLUOXETINE [Concomitant]
     Active Substance: FLUOXETINE HYDROCHLORIDE
     Dosage: 20 MILLIGRAM
     Route: 048
     Dates: start: 2021
  7. DOXORUBICIN [Concomitant]
     Active Substance: DOXORUBICIN
     Indication: Acute lymphocytic leukaemia
     Dosage: 42.2 MILLIGRAM
     Dates: start: 20220118, end: 20220208
  8. OMEPRAZOLE [Concomitant]
     Active Substance: OMEPRAZOLE
     Dosage: 20 MILLIGRAM
     Route: 048
     Dates: start: 2021
  9. BACTRIM [Concomitant]
     Active Substance: SULFAMETHOXAZOLE\TRIMETHOPRIM
     Dosage: 800 MILLIGRAM
     Route: 048
     Dates: start: 20220117, end: 20220228
  10. VALTREX [Concomitant]
     Active Substance: VALACYCLOVIR HYDROCHLORIDE
     Dosage: 500 MILLIGRAM
     Route: 048
     Dates: start: 20220117, end: 20220310
  11. PROZAC [Concomitant]
     Active Substance: FLUOXETINE HYDROCHLORIDE
     Dosage: 20 MILLIGRAM
     Route: 048
     Dates: start: 20220118, end: 20220129
  12. NORVASC [Concomitant]
     Active Substance: AMLODIPINE BESYLATE
     Dosage: 10 MILLIGRAM
     Route: 048
     Dates: start: 20220119, end: 20220303
  13. SIMETHICONE (DIMETHICONE) [Concomitant]
     Active Substance: DIMETHICONE
     Dosage: 40 MILLIGRAM
     Route: 048
     Dates: start: 20220118, end: 20220209
  14. ALLOPURINOL [Concomitant]
     Active Substance: ALLOPURINOL
     Dosage: 100 MILLIGRAM
     Route: 048
     Dates: start: 20220118, end: 20220209
  15. FOSAPREPITANT [Concomitant]
     Active Substance: FOSAPREPITANT
     Dosage: 150 MILLIGRAM
     Route: 030
     Dates: start: 20220118, end: 20220118
  16. POTASSIUM CHLORIDE [Concomitant]
     Active Substance: POTASSIUM CHLORIDE
     Dosage: 60-600 MILLIGRAM
     Route: 048
     Dates: start: 20220118, end: 20220304
  17. HEMATON [Concomitant]
     Dosage: 30 MILLIGRAM
     Route: 061
     Dates: start: 20220118, end: 20220209
  18. Hydraderm [Concomitant]
     Dosage: 50 GRAM
     Route: 061
     Dates: start: 20220121, end: 20220227
  19. DIPHENHYDRAMINE [Concomitant]
     Active Substance: DIPHENHYDRAMINE
     Dosage: 50 MILLIGRAM
     Route: 042
     Dates: start: 20220121, end: 20220204
  20. NYSTATIN [Concomitant]
     Active Substance: NYSTATIN
     Dosage: 50 MILLILITER
     Route: 048
     Dates: start: 20220128, end: 20220130
  21. MYLANTA PLUS [Concomitant]
     Active Substance: ALUMINUM HYDROXIDE\DIMETHICONE\MAGNESIUM HYDROXIDE
     Dosage: 10 MILLIGRAM
     Route: 048
     Dates: start: 20220128, end: 20220129
  22. MYDRIACYL [Concomitant]
     Active Substance: TROPICAMIDE
     Dosage: 5 MILLILITER
     Route: 047
     Dates: start: 20220208, end: 20220208
  23. Daflon [Concomitant]
     Dosage: 500 MILLIGRAM
     Route: 048
     Dates: start: 20220208, end: 20220209
  24. DIBUCAINE\POLICRESULEN [Concomitant]
     Active Substance: DIBUCAINE\POLICRESULEN
     Dosage: 30 GRAM
     Route: 061
     Dates: start: 20220208, end: 20220209
  25. DEXTRAN 70\HYPROMELLOSES [Concomitant]
     Active Substance: DEXTRAN 70\HYPROMELLOSES
     Dosage: 15 MILLILITER
     Route: 047
     Dates: start: 20220208, end: 20220209
  26. METICORTEN [Concomitant]
     Active Substance: PREDNISONE
     Dosage: 20 MILLIGRAM
     Route: 048
     Dates: start: 20220208, end: 20220312
  27. PANTOPRAZOLE SODIUM [Concomitant]
     Active Substance: PANTOPRAZOLE SODIUM
     Dosage: 20-40 MILLIGRAM
     Route: 048
     Dates: start: 20220118, end: 20220305
  28. ONDANSETRON HYDROCHLORIDE [Concomitant]
     Active Substance: ONDANSETRON HYDROCHLORIDE
     Dosage: 8 MILLIGRAM
     Route: 042
     Dates: start: 20220117, end: 20220209
  29. MYCAMINE [Concomitant]
     Active Substance: MICAFUNGIN SODIUM
     Dosage: 100-150 MILLIGRAM
     Route: 042
     Dates: start: 20220131, end: 20220301
  30. ALBENDAZOLE [Concomitant]
     Active Substance: ALBENDAZOLE
     Dosage: 400 MILLIGRAM
     Route: 048
     Dates: start: 20220117, end: 20220118
  31. ACETAMINOPHEN [Concomitant]
     Active Substance: ACETAMINOPHEN
     Dosage: 750 MILLIGRAM
     Route: 048
     Dates: start: 20220121, end: 20220204
  32. NUTRIDRINK PROTEIN [Concomitant]
     Dosage: 125 MILLILITER
     Route: 048
     Dates: start: 20220121, end: 20220121
  33. LANOLIN OIL [Concomitant]
     Dosage: 30 GRAM
     Route: 061
     Dates: start: 20220121, end: 20220209
  34. FLUCONAZOLE [Concomitant]
     Active Substance: FLUCONAZOLE
     Dosage: 100 MILLIGRAM
     Route: 048
     Dates: start: 20220128, end: 20220130
  35. SODIUM CHLORIDE [Concomitant]
     Active Substance: SODIUM CHLORIDE
     Dosage: 265 MILLILITER
     Route: 042
     Dates: start: 20220118, end: 20220209
  36. OMEPRAZOLE [Concomitant]
     Active Substance: OMEPRAZOLE
     Dosage: 20 MILLIGRAM
     Route: 048
     Dates: start: 2021

REACTIONS (1)
  - Pyrexia [Recovered/Resolved]

NARRATIVE: CASE EVENT DATE: 20220217
